FAERS Safety Report 23979366 (Version 3)
Quarter: 2024Q3

REPORT INFORMATION
  Report Type: Report from Study
  Country: US (occurrence: US)
  Receive Date: 20240615
  Receipt Date: 20240822
  Transmission Date: 20241016
  Serious: Yes (Other)
  Sender: TAKEDA
  Company Number: US-TAKEDA-2024TUS058278

PATIENT
  Sex: Male

DRUGS (1)
  1. FRUQUINTINIB [Suspect]
     Active Substance: FRUQUINTINIB
     Indication: Rectal cancer
     Dosage: 5 MILLIGRAM
     Route: 048
     Dates: start: 20240523

REACTIONS (6)
  - Hepatic cancer [Unknown]
  - Neuropathy peripheral [Unknown]
  - Tumour pain [Unknown]
  - Abdominal discomfort [Unknown]
  - Pain in extremity [Unknown]
  - Fatigue [Unknown]
